FAERS Safety Report 23760844 (Version 1)
Quarter: 2024Q2

REPORT INFORMATION
  Report Type: Other
  Country: RU (occurrence: None)
  Receive Date: 20240419
  Receipt Date: 20240419
  Transmission Date: 20240716
  Serious: Yes (Other)
  Sender: FDA-Public Use
  Company Number: RU-ROCHE-3545964

PATIENT

DRUGS (14)
  1. RITUXIMAB [Suspect]
     Active Substance: RITUXIMAB
     Indication: Burkitt^s lymphoma
     Route: 065
  2. RITUXIMAB [Suspect]
     Active Substance: RITUXIMAB
     Indication: Prophylaxis against transplant rejection
  3. IBRUTINIB [Suspect]
     Active Substance: IBRUTINIB
     Indication: Burkitt^s lymphoma
     Route: 065
  4. IBRUTINIB [Suspect]
     Active Substance: IBRUTINIB
     Indication: Prophylaxis against transplant rejection
  5. LOMUSTINE [Suspect]
     Active Substance: LOMUSTINE
     Indication: Prophylaxis against transplant rejection
     Route: 065
  6. MELPHALAN [Suspect]
     Active Substance: MELPHALAN
     Indication: Prophylaxis against transplant rejection
     Route: 065
  7. ETOPOSIDE [Suspect]
     Active Substance: ETOPOSIDE
     Indication: Prophylaxis against transplant rejection
     Route: 065
  8. CYTARABINE [Suspect]
     Active Substance: CYTARABINE
     Indication: Prophylaxis against transplant rejection
     Route: 065
  9. NIVOLUMAB [Concomitant]
     Active Substance: NIVOLUMAB
  10. IFOSFAMIDE [Concomitant]
     Active Substance: IFOSFAMIDE
  11. CARBOPLATIN [Concomitant]
     Active Substance: CARBOPLATIN
  12. DEXAMETHASONE [Concomitant]
     Active Substance: DEXAMETHASONE
  13. BENDAMUSTINE [Concomitant]
     Active Substance: BENDAMUSTINE
  14. FLUDARABINE [Concomitant]
     Active Substance: FLUDARABINE PHOSPHATE

REACTIONS (4)
  - Bone marrow failure [Recovered/Resolved]
  - Neutropenic colitis [Recovered/Resolved]
  - Toxic skin eruption [Recovered/Resolved]
  - Pharyngeal inflammation [Recovered/Resolved]
